FAERS Safety Report 5876126-2 (Version None)
Quarter: 2008Q3

REPORT INFORMATION
  Report Type: 
  Country: None (occurrence: None)
  Receive Date: 20080909
  Receipt Date: 20080909
  Transmission Date: 20090109
  Serious: Yes (Other)
  Sender: FDA-Public Use
  Company Number: None

PATIENT
  Age: 53 Year
  Sex: Male
  Weight: 77.3 kg

DRUGS (1)
  1. HURRICAINE SPRAY 20% BENZOCAINE BEUTLICH [Suspect]
     Indication: ENDOTRACHEAL INTUBATION
     Dosage: 1 SPRAY EVERY 4 HOURS PRN OROPHARINGEAL
     Route: 049
     Dates: start: 20080905, end: 20080905

REACTIONS (2)
  - BLOOD METHAEMOGLOBIN PRESENT [None]
  - OXYGEN SATURATION DECREASED [None]
